FAERS Safety Report 20262798 (Version 1)
Quarter: 2021Q4

REPORT INFORMATION
  Report Type: Spontaneous
  Country: GB (occurrence: GB)
  Receive Date: 20211231
  Receipt Date: 20211231
  Transmission Date: 20220303
  Serious: Yes (Other)
  Sender: FDA-Public Use
  Company Number: None

PATIENT
  Age: 41 Year
  Sex: Female

DRUGS (2)
  1. STELARA [Suspect]
     Active Substance: USTEKINUMAB
     Indication: Inflammatory bowel disease
     Dosage: 390MG IV THEN 90MG SC
     Route: 042
     Dates: start: 20211005
  2. STELARA [Suspect]
     Active Substance: USTEKINUMAB
     Dosage: 390MG IV THEN 90MG SC
     Route: 058
     Dates: start: 20211202

REACTIONS (1)
  - Rash macular [Recovered/Resolved]

NARRATIVE: CASE EVENT DATE: 20211206
